FAERS Safety Report 23860241 (Version 10)
Quarter: 2024Q4

REPORT INFORMATION
  Report Type: Report from Study
  Country: CA (occurrence: CA)
  Receive Date: 20240515
  Receipt Date: 20241228
  Transmission Date: 20250115
  Serious: Yes (Hospitalization, Other)
  Sender: JOHNSON AND JOHNSON
  Company Number: CA-JNJFOC-20240232796

PATIENT
  Age: 28 Year
  Sex: Female
  Weight: 75 kg

DRUGS (7)
  1. REMICADE [Suspect]
     Active Substance: INFLIXIMAB
     Indication: Colitis ulcerative
     Route: 041
     Dates: start: 20191120
  2. REMICADE [Suspect]
     Active Substance: INFLIXIMAB
     Route: 041
     Dates: start: 20220623
  3. REMICADE [Suspect]
     Active Substance: INFLIXIMAB
     Route: 041
  4. REMICADE [Suspect]
     Active Substance: INFLIXIMAB
     Route: 041
     Dates: start: 20240811
  5. REMICADE [Suspect]
     Active Substance: INFLIXIMAB
     Route: 041
     Dates: start: 20191120
  6. REMICADE [Suspect]
     Active Substance: INFLIXIMAB
     Route: 041
  7. HYDROCORTISONE [Concomitant]
     Active Substance: HYDROCORTISONE
     Dosage: FOR 8 WEEKS TWO WEEKS AGO

REACTIONS (13)
  - Uterine haematoma [Unknown]
  - Placenta praevia [Recovering/Resolving]
  - Colitis ulcerative [Recovering/Resolving]
  - Postpartum haemorrhage [Recovered/Resolved]
  - Influenza [Recovering/Resolving]
  - Exposure during pregnancy [Recovered/Resolved]
  - Hypertension [Not Recovered/Not Resolved]
  - Dysmenorrhoea [Unknown]
  - Migraine [Not Recovered/Not Resolved]
  - Thirst [Unknown]
  - Nausea [Unknown]
  - Gastroenteritis [Recovered/Resolved]
  - Infusion related reaction [Not Recovered/Not Resolved]

NARRATIVE: CASE EVENT DATE: 20240129
